FAERS Safety Report 4918631-9 (Version None)
Quarter: 2006Q1

REPORT INFORMATION
  Report Type: 
  Country: None (occurrence: None)
  Receive Date: 20060222
  Receipt Date: 20060210
  Transmission Date: 20060701
  Serious: Yes (Death, Life-Threatening, Other)
  Sender: FDA-Public Use
  Company Number: CN-BRISTOL-MYERS SQUIBB COMPANY-13278262

PATIENT
  Age: 57 Year
  Sex: Male

DRUGS (1)
  1. VELOSEF [Suspect]
     Indication: PROPHYLAXIS
     Route: 042
     Dates: start: 20060208

REACTIONS (8)
  - ANAPHYLACTIC SHOCK [None]
  - APNOEA [None]
  - COMA [None]
  - HEART RATE IRREGULAR [None]
  - HEPATOCELLULAR DAMAGE [None]
  - MULTI-ORGAN FAILURE [None]
  - RENAL INJURY [None]
  - RESUSCITATION [None]
